FAERS Safety Report 25146803 (Version 1)
Quarter: 2025Q2

REPORT INFORMATION
  Report Type: Spontaneous
  Country: US (occurrence: US)
  Receive Date: 20250401
  Receipt Date: 20250401
  Transmission Date: 20250716
  Serious: Yes (Hospitalization)
  Sender: ALNYLAM PHARMACEUTICALS
  Company Number: US-ALNYLAM PHARMACEUTICALS, INC.-ALN-2025-002025

PATIENT

DRUGS (1)
  1. AMVUTTRA [Suspect]
     Active Substance: VUTRISIRAN
     Indication: Product used for unknown indication
     Route: 065
     Dates: start: 20250307, end: 20250307

REACTIONS (1)
  - Intestinal obstruction [Unknown]
